FAERS Safety Report 12872662 (Version 1)
Quarter: 2016Q4

REPORT INFORMATION
  Report Type: Spontaneous
  Country: US (occurrence: US)
  Receive Date: 20161021
  Receipt Date: 20161021
  Transmission Date: 20170207
  Serious: Yes (Other)
  Sender: FDA-Public Use
  Company Number: US-BAUSCH-BL-2016-025640

PATIENT
  Age: 69 Year
  Sex: Female

DRUGS (1)
  1. XENAZINE [Suspect]
     Active Substance: TETRABENAZINE
     Indication: DYSKINESIA
     Dosage: 12.5 MG ONE TABLET IN THE MORNING AND TWO TABLETS IN THE EVENING AND ONE TABLET AT BEDTIME
     Route: 048
     Dates: start: 20160516

REACTIONS (2)
  - Off label use [Not Recovered/Not Resolved]
  - Hepatic enzyme increased [Recovered/Resolved]

NARRATIVE: CASE EVENT DATE: 2016
